FAERS Safety Report 9167622 (Version 1)
Quarter: 2013Q1

REPORT INFORMATION
  Report Type: Spontaneous
  Country: GB (occurrence: None)
  Receive Date: 20130304
  Receipt Date: 20130304
  Transmission Date: 20140127
  Serious: No
  Sender: FDA-Public Use
  Company Number: CL-475-2013

PATIENT
  Age: 57 Year
  Sex: Female
  Weight: 76 kg

DRUGS (6)
  1. FLUCONAZOLE [Suspect]
     Dates: start: 20130117
  2. ALGINATES [Concomitant]
  3. AMLODIPINE [Concomitant]
  4. ATEMOLOL [Concomitant]
  5. CO-DYDRANOL (DIHYDROCODEINE TARTRATE, PARACETAMOL) [Concomitant]
  6. CO-AMOXICLAV (AMOXYCILLIN,POTASSIUM CLAVULANATE) [Concomitant]

REACTIONS (2)
  - Encephalitic infection [None]
  - Meningitis [None]
